FAERS Safety Report 23199369 (Version 1)
Quarter: 2023Q4

REPORT INFORMATION
  Report Type: Spontaneous
  Country: US (occurrence: US)
  Receive Date: 20231117
  Receipt Date: 20231117
  Transmission Date: 20240110
  Serious: No
  Sender: FDA-Public Use
  Company Number: US-Stemline Therapeutics, Inc.-2023ST003929

PATIENT
  Age: 54 Year
  Sex: Female

DRUGS (6)
  1. ORSERDU [Suspect]
     Active Substance: ELACESTRANT
     Indication: Product used for unknown indication
     Route: 048
  2. COLCHICINE [Concomitant]
     Active Substance: COLCHICINE
     Indication: Product used for unknown indication
     Dosage: 0.6 MG PO DAILY
     Route: 048
  3. LEVOFLOXACIN [Concomitant]
     Active Substance: LEVOFLOXACIN
     Indication: Product used for unknown indication
     Dosage: 500 MG PO DAILY
     Route: 048
  4. LOPRESSOR [Concomitant]
     Active Substance: METOPROLOL TARTRATE
     Indication: Hypertension
     Dosage: 50 MG PO DAILY
     Route: 048
  5. OMEPRAZOLE [Concomitant]
     Active Substance: OMEPRAZOLE
     Indication: Blood cholesterol increased
     Dosage: 40 MG PO DAILY
     Route: 048
  6. PREDNISONE [Concomitant]
     Active Substance: PREDNISONE
     Indication: Product used for unknown indication
     Dosage: 20 MG PO DAILY
     Route: 048

REACTIONS (1)
  - Nausea [Not Recovered/Not Resolved]
